FAERS Safety Report 4502464-1 (Version None)
Quarter: 2004Q4

REPORT INFORMATION
  Report Type: 
  Country: None (occurrence: None)
  Receive Date: 20041112
  Receipt Date: 20041109
  Transmission Date: 20050328
  Serious: Yes (Hospitalization)
  Sender: FDA-Public Use
  Company Number: THQ2004A00948

PATIENT
  Age: 32 Year

DRUGS (1)
  1. PROSTAP(LEUPROLIDE ACETATE) [Suspect]
     Dosage: 3.75 MG (3.75 MG, 1 IN 1 MIN)  INTRAMUSCULAR
     Route: 030
     Dates: start: 20041025, end: 20041025

REACTIONS (2)
  - PHOTOPHOBIA [None]
  - RASH [None]
